FAERS Safety Report 7893780-4 (Version None)
Quarter: 2011Q4

REPORT INFORMATION
  Report Type: 
  Country: None (occurrence: None)
  Receive Date: 20111104
  Receipt Date: 20111026
  Transmission Date: 20120403
  Serious: Yes (Other)
  Sender: FDA-Public Use
  Company Number: JP-SANOFI-AVENTIS-2011SA067350

PATIENT
  Age: 60 Year
  Sex: Male

DRUGS (2)
  1. PLAVIX [Suspect]
     Indication: ANGINA PECTORIS
     Route: 065
     Dates: end: 20111007
  2. OMEPRAZOLE [Concomitant]

REACTIONS (1)
  - THROMBOSIS [None]
